FAERS Safety Report 5066117-6 (Version None)
Quarter: 2006Q3

REPORT INFORMATION
  Report Type: 
  Country: None (occurrence: None)
  Receive Date: 20060725
  Receipt Date: 20060720
  Transmission Date: 20061208
  Serious: Yes (Hospitalization, Other)
  Sender: FDA-Public Use
  Company Number: 200610168BVD

PATIENT
  Age: 57 Year
  Sex: Male

DRUGS (2)
  1. TRASYLOL [Suspect]
     Indication: CORONARY ARTERY BYPASS
     Dosage: 7250000 IU, TOTAL DAILY,
     Dates: start: 19960506
  2. PLAVIX [Concomitant]

REACTIONS (15)
  - BALANCE DISORDER [None]
  - BRAIN STEM ISCHAEMIA [None]
  - CEREBROVASCULAR ACCIDENT [None]
  - DIZZINESS [None]
  - FIBRINOLYSIS ABNORMAL [None]
  - FOLATE DEFICIENCY [None]
  - HEMIPLEGIA [None]
  - HOMOCYSTINAEMIA [None]
  - LABILE HYPERTENSION [None]
  - LIPOPROTEIN (A) INCREASED [None]
  - NYSTAGMUS [None]
  - REVERSIBLE ISCHAEMIC NEUROLOGICAL DEFICIT [None]
  - VENOUS THROMBOSIS [None]
  - VERTIGO [None]
  - VOMITING [None]
